FAERS Safety Report 17864538 (Version 1)
Quarter: 2020Q2

REPORT INFORMATION
  Report Type: Spontaneous
  Country: US (occurrence: US)
  Receive Date: 20200604
  Receipt Date: 20200604
  Transmission Date: 20200714
  Serious: Yes (Other)
  Sender: FDA-Public Use
  Company Number: None

PATIENT
  Age: 57 Year
  Sex: Female
  Weight: 87 kg

DRUGS (16)
  1. MAGNESIUM 250 MG TABLET [Concomitant]
  2. OMEGA-3-FATTY ACIDS VITAMIN 1000 MG CAPSULE [Concomitant]
  3. PREDNISONE 5 MG TABLET [Concomitant]
     Active Substance: PREDNISONE
  4. TRAMADOL 50 MG TABLET [Concomitant]
  5. BUPROPION 300 MG XL [Concomitant]
  6. MULTIVITAMIN TABLET [Concomitant]
  7. HYDROCODONE-ACETAMINOPHEN 5-325 MG TABLET [Concomitant]
  8. CLOBETASOL 0.005% CREAM [Concomitant]
  9. FLUTICASONE 50 MCG NASAL SPRAY [Concomitant]
  10. IPRATROPIUM 0.06% NASAL SPRAY [Concomitant]
  11. CHOLECALCIFEROL 1000 UNITS [Concomitant]
  12. HUMIRA [Suspect]
     Active Substance: ADALIMUMAB
     Indication: PSORIATIC ARTHROPATHY
     Dosage: ?          OTHER FREQUENCY:EVERY TWO WEEKS;?
     Route: 058
     Dates: start: 20200411, end: 20200505
  13. HUMIRA [Suspect]
     Active Substance: ADALIMUMAB
     Indication: PSORIATIC ARTHROPATHY
     Dosage: ?          OTHER FREQUENCY:EVERY TWO WEEKS;?
     Route: 058
     Dates: start: 20200214, end: 20200410
  14. FLAXSEED 1000 MG CAPSULE [Concomitant]
  15. IBUPROFEN 600 MG TABLET [Concomitant]
  16. LIDOCAINE 2%, VISCOUS [Concomitant]

REACTIONS (2)
  - Pharyngitis streptococcal [None]
  - Psoriasis [None]

NARRATIVE: CASE EVENT DATE: 20200505
